FAERS Safety Report 5445265-2 (Version None)
Quarter: 2007Q3

REPORT INFORMATION
  Report Type: 
  Country: None (occurrence: None)
  Receive Date: 20070731
  Receipt Date: 20070517
  Transmission Date: 20080115
  Serious: Yes (Hospitalization)
  Sender: FDA-Public Use
  Company Number: US200705005444

PATIENT
  Age: 54 Year
  Sex: Male

DRUGS (7)
  1. BYETTA [Suspect]
     Dosage: 10 UG
     Dates: start: 20060501
  2. AMARYL [Concomitant]
  3. AVANDAMET [Concomitant]
  4. NAPROSYN [Concomitant]
  5. LISINOPRIL [Concomitant]
  6. NORVASC [Concomitant]
  7. LANTUS [Concomitant]

REACTIONS (1)
  - PANCREATITIS [None]
